FAERS Safety Report 25385805 (Version 1)
Quarter: 2025Q2

REPORT INFORMATION
  Report Type: Spontaneous
  Country: US (occurrence: None)
  Receive Date: 20250531
  Receipt Date: 20250531
  Transmission Date: 20250716
  Serious: Yes (Hospitalization, Disabling)
  Sender: FDA-CTU
  Company Number: None

PATIENT
  Age: 50 Year
  Sex: Male
  Weight: 78.75 kg

DRUGS (3)
  1. CLONAZEPAM [Suspect]
     Active Substance: CLONAZEPAM
     Indication: Sleep disorder
  2. CLONAZEPAM [Suspect]
     Active Substance: CLONAZEPAM
     Indication: Anxiety
  3. BUPRENORPHINE [Concomitant]
     Active Substance: BUPRENORPHINE

REACTIONS (5)
  - Balance disorder [None]
  - Muscle strength abnormal [None]
  - Suicidal ideation [None]
  - Nerve injury [None]
  - Impaired work ability [None]

NARRATIVE: CASE EVENT DATE: 20220307
